FAERS Safety Report 10031311 (Version 4)
Quarter: 2014Q2

REPORT INFORMATION
  Report Type: Report from Study
  Country: TR (occurrence: TR)
  Receive Date: 20140324
  Receipt Date: 20140515
  Transmission Date: 20141212
  Serious: Yes (Death, Hospitalization)
  Sender: FDA-Public Use
  Company Number: TR-ROCHE-1363131

PATIENT
  Age: 80 Year
  Sex: Male
  Weight: 74 kg

DRUGS (11)
  1. OBINUTUZUMAB [Suspect]
     Indication: CHRONIC LYMPHOCYTIC LEUKAEMIA
     Dosage: 04/MAR/2014: C1D1: 25 MG?05/MAR/2014: C1D2: 975 MG?DATE OF LAST DOSE PRIOR TO EVENT: 05/MAR/2014
     Route: 042
     Dates: start: 20140304
  2. BENDAMUSTINE [Suspect]
     Indication: CHRONIC LYMPHOCYTIC LEUKAEMIA
     Dosage: 04/MAR/2014: C1D1: 90 MG/M2?05/MAR/2014: C1D2: 90 MG/M2
     Route: 042
     Dates: start: 20140304
  3. GRANISETRON HYDROCHLORIDE [Concomitant]
     Dosage: SINGLE DOSE
     Route: 048
     Dates: start: 20140309, end: 20140309
  4. GRANISETRON [Concomitant]
     Indication: PROPHYLAXIS
     Dosage: SINGLE DOSE
     Route: 042
     Dates: start: 20140304, end: 20140304
  5. GRANISETRON [Concomitant]
     Dosage: SINGLE DOSE
     Route: 042
     Dates: start: 20140305, end: 20140305
  6. DEKORT [Concomitant]
     Indication: PROPHYLAXIS
     Dosage: SINGLE DOSE
     Route: 042
     Dates: start: 20140304, end: 20140304
  7. DEKORT [Concomitant]
     Dosage: SINGLE DOSE
     Route: 042
     Dates: start: 20140304, end: 20140304
  8. DEKORT [Concomitant]
     Dosage: SINGLE DOSE
     Route: 042
     Dates: start: 20140305, end: 20140305
  9. AVIL [Concomitant]
     Indication: PROPHYLAXIS
     Dosage: SINGLE DOSE
     Route: 042
     Dates: start: 20140304, end: 20140304
  10. AVIL [Concomitant]
     Dosage: SINGLE DOSE
     Route: 042
     Dates: start: 20140304, end: 20140304
  11. AVIL [Concomitant]
     Dosage: SINGLE DOSE
     Route: 042
     Dates: start: 20140305, end: 20140305

REACTIONS (2)
  - Tumour lysis syndrome [Fatal]
  - Febrile neutropenia [Fatal]
